FAERS Safety Report 8958803 (Version 1)
Quarter: 2012Q4

REPORT INFORMATION
  Report Type: 
  Country: AU (occurrence: AU)
  Receive Date: 20121212
  Receipt Date: 20121212
  Transmission Date: 20130627
  Serious: Yes (Death, Hospitalization)
  Sender: FDA-Public Use
  Company Number: PHHY2012AU114153

PATIENT
  Age: 56 Year
  Sex: Male

DRUGS (3)
  1. CAPECITABINE [Suspect]
     Indication: COLON CANCER METASTATIC
     Dosage: 1500 mg, BID
     Route: 048
  2. CAPECITABINE [Suspect]
     Dosage: 1500 mg, QD
     Route: 048
  3. OXALIPLATIN [Suspect]
     Indication: COLON CANCER METASTATIC
     Dosage: 240 mg, QW3
     Route: 042

REACTIONS (11)
  - Colon cancer metastatic [Fatal]
  - Posterior reversible encephalopathy syndrome [Unknown]
  - Nausea [Unknown]
  - Vomiting [Unknown]
  - Lethargy [Unknown]
  - Somnolence [Unknown]
  - Grand mal convulsion [Recovered/Resolved]
  - Depressed level of consciousness [Recovered/Resolved]
  - Renal impairment [Unknown]
  - Hepatic function abnormal [Unknown]
  - Hypertension [Unknown]
